FAERS Safety Report 20567934 (Version 1)
Quarter: 2022Q1

REPORT INFORMATION
  Report Type: Spontaneous
  Country: US (occurrence: None)
  Receive Date: 20220308
  Receipt Date: 20220308
  Transmission Date: 20220424
  Serious: Yes (Hospitalization)
  Sender: FDA-Public Use
  Company Number: None

PATIENT
  Age: 59 Year
  Sex: Female

DRUGS (1)
  1. CARBAMAZEPINE [Suspect]
     Active Substance: CARBAMAZEPINE
     Dosage: OTHER FREQUENCY : 5 TIMES DAILY;?
     Route: 048

REACTIONS (2)
  - Seizure [None]
  - Drug level decreased [None]

NARRATIVE: CASE EVENT DATE: 20220208
